FAERS Safety Report 21685208 (Version 1)
Quarter: 2022Q4

REPORT INFORMATION
  Report Type: Spontaneous
  Country: SK (occurrence: SK)
  Receive Date: 20221206
  Receipt Date: 20221206
  Transmission Date: 20230113
  Serious: Yes (Other)
  Sender: FDA-Public Use
  Company Number: SK-002147023-NVSC2022SK281247

PATIENT
  Sex: Male

DRUGS (3)
  1. BEOVU [Suspect]
     Active Substance: BROLUCIZUMAB-DBLL
     Indication: Product used for unknown indication
     Dosage: 120 MILLIGRAM PER MILLILITRE (RIGHT EYE)
     Route: 065
     Dates: start: 2022
  2. BEOVU [Suspect]
     Active Substance: BROLUCIZUMAB-DBLL
     Dosage: 120 MILLIGRAM PER MILLILITRE (RIGHT EYE)
     Route: 065
  3. BEOVU [Suspect]
     Active Substance: BROLUCIZUMAB-DBLL
     Dosage: 120 MILLIGRAM PER MILLILITRE (RIGHT EYE)
     Route: 065
     Dates: start: 20221102

REACTIONS (9)
  - Iris adhesions [Unknown]
  - Retinal vasculitis [Unknown]
  - Vitritis [Unknown]
  - Keratic precipitates [Unknown]
  - Eye haemorrhage [Unknown]
  - Visual acuity reduced [Unknown]
  - Eye pain [Unknown]
  - Visual impairment [Unknown]
  - Intraocular pressure increased [Unknown]

NARRATIVE: CASE EVENT DATE: 20221113
